FAERS Safety Report 9308963 (Version 2)
Quarter: 2013Q2

REPORT INFORMATION
  Report Type: Spontaneous
  Country: IN (occurrence: IN)
  Receive Date: 20130524
  Receipt Date: 20130529
  Transmission Date: 20140414
  Serious: No
  Sender: FDA-Public Use
  Company Number: IN-MERCK-1305IND012154

PATIENT
  Sex: 0

DRUGS (2)
  1. VIRAFERONPEG [Suspect]
     Dosage: 80 MICROGRAM, UNK
  2. REBETOL [Suspect]
     Route: 048

REACTIONS (2)
  - Expired drug administered [Unknown]
  - Product expiration date issue [Unknown]
